FAERS Safety Report 4507801-X (Version None)
Quarter: 2004Q4

REPORT INFORMATION
  Report Type: 
  Country: None (occurrence: None)
  Receive Date: 20041123
  Receipt Date: 20041118
  Transmission Date: 20050328
  Serious: Yes (Hospitalization)
  Sender: FDA-Public Use
  Company Number: US-BRISTOL-MYERS SQUIBB COMPANY-12769964

PATIENT
  Sex: Male

DRUGS (1)
  1. SINEMET CR [Suspect]
     Indication: RESTLESS LEGS SYNDROME
     Dosage: NUMBER OF DOSAGES:  8 TO 10 DAILY.  DURATION OF THERAPY:  ^FOR A WHILE^
     Route: 048

REACTIONS (2)
  - BLOOD DISORDER [None]
  - GASTROINTESTINAL HAEMORRHAGE [None]
